FAERS Safety Report 7080540-X (Version None)
Quarter: 2010Q4

REPORT INFORMATION
  Report Type: 
  Country: None (occurrence: None)
  Receive Date: 20101103
  Receipt Date: 20101021
  Transmission Date: 20110411
  Serious: Yes (Other)
  Sender: FDA-Public Use
  Company Number: JP-AMGEN-US444458

PATIENT

DRUGS (7)
  1. ETANERCEPT [Suspect]
     Indication: RHEUMATOID ARTHRITIS
     Dosage: 25 MG, 2 TIMES/WK
     Route: 065
  2. LEFLUNOMIDE [Concomitant]
     Dosage: UNK UNK, UNK
     Route: 065
  3. LEFLUNOMIDE [Concomitant]
     Dosage: DOSE UNKNOWN
     Route: 065
  4. LEFLUNOMIDE [Concomitant]
     Route: 048
  5. PREDNISOLONE [Concomitant]
     Dosage: UNK UNK, UNK
     Route: 065
  6. PREDNISOLONE [Concomitant]
     Dosage: DOSE UNKNOWN
     Route: 065
  7. PREDNISOLONE [Concomitant]
     Route: 048

REACTIONS (3)
  - CONDITION AGGRAVATED [None]
  - HENOCH-SCHONLEIN PURPURA [None]
  - RHEUMATOID ARTHRITIS [None]
